FAERS Safety Report 11082681 (Version 1)
Quarter: 2015Q2

REPORT INFORMATION
  Report Type: Spontaneous
  Country: US (occurrence: US)
  Receive Date: 20150501
  Receipt Date: 20150501
  Transmission Date: 20150821
  Serious: No
  Sender: FDA-Public Use
  Company Number: US-ABBVIE-14P-163-1254448-00

PATIENT
  Sex: Male
  Weight: 72.64 kg

DRUGS (20)
  1. ISOSORBIDE [Concomitant]
     Active Substance: ISOSORBIDE
     Indication: ANGINA PECTORIS
  2. ASPIRIN. [Concomitant]
     Active Substance: ASPIRIN
     Indication: ANTICOAGULANT THERAPY
  3. METFORMIN [Concomitant]
     Active Substance: METFORMIN HYDROCHLORIDE
     Indication: TYPE 2 DIABETES MELLITUS
  4. PLAVIX [Concomitant]
     Active Substance: CLOPIDOGREL BISULFATE
     Indication: ANTICOAGULANT THERAPY
  5. COENZYME Q10 [Concomitant]
     Active Substance: UBIDECARENONE
     Indication: NUTRITIONAL SUPPLEMENTATION
  6. ANDROGEL [Suspect]
     Active Substance: TESTOSTERONE
     Indication: BLOOD TESTOSTERONE DECREASED
     Dates: start: 201309, end: 2014
  7. LIPITOR [Concomitant]
     Active Substance: ATORVASTATIN CALCIUM
     Indication: BLOOD CHOLESTEROL INCREASED
  8. LINZESS [Concomitant]
     Active Substance: LINACLOTIDE
     Indication: CONSTIPATION
  9. KYOLIC GARLIC [Concomitant]
     Indication: NUTRITIONAL SUPPLEMENTATION
  10. RANEXA [Concomitant]
     Active Substance: RANOLAZINE
     Indication: ANGINA PECTORIS
  11. SLO-NIACIN [Concomitant]
     Active Substance: DIETARY SUPPLEMENT
     Indication: HIGH DENSITY LIPOPROTEIN INCREASED
  12. ALFUZOSIN [Concomitant]
     Active Substance: ALFUZOSIN
     Indication: BENIGN PROSTATIC HYPERPLASIA
  13. NITROGLYCERINE [Concomitant]
     Active Substance: NITROGLYCERIN
     Indication: ANGINA PECTORIS
  14. FISH OIL [Concomitant]
     Active Substance: FISH OIL
     Indication: PRODUCT USED FOR UNKNOWN INDICATION
  15. METOPROLOL [Concomitant]
     Active Substance: METOPROLOL
     Indication: HYPERTENSION
  16. VITAMIN D [Concomitant]
     Active Substance: CHOLECALCIFEROL
     Indication: VITAMIN D DEFICIENCY
  17. MAGNESIUM [Concomitant]
     Active Substance: MAGNESIUM
     Indication: MINERAL SUPPLEMENTATION
  18. ANDROGEL [Suspect]
     Active Substance: TESTOSTERONE
     Indication: ANGINA UNSTABLE
     Dates: start: 2014
  19. LISINOPRIL. [Concomitant]
     Active Substance: LISINOPRIL
     Indication: HYPERTENSION
  20. MULTIVITAMIN [Concomitant]
     Active Substance: VITAMINS
     Indication: VITAMIN SUPPLEMENTATION

REACTIONS (7)
  - Angina unstable [Recovered/Resolved]
  - Angina unstable [Unknown]
  - Blood testosterone decreased [Not Recovered/Not Resolved]
  - Therapeutic response unexpected [Unknown]
  - Product use issue [Unknown]
  - Therapeutic response unexpected [Not Recovered/Not Resolved]
  - Prostatic specific antigen decreased [Not Recovered/Not Resolved]

NARRATIVE: CASE EVENT DATE: 2014
